FAERS Safety Report 8959044 (Version 2)
Quarter: 2013Q1

REPORT INFORMATION
  Report Type: Report from Study
  Country: NZ (occurrence: NZ)
  Receive Date: 20121212
  Receipt Date: 20130130
  Transmission Date: 20140127
  Serious: Yes (Other)
  Sender: FDA-Public Use
  Company Number: NZ-CELGENEUS-118-C5013-12114007

PATIENT
  Age: 77 Year
  Sex: Male
  Weight: 76.7 kg

DRUGS (2)
  1. CC-5013 [Suspect]
     Indication: CHRONIC LYMPHOCYTIC LEUKAEMIA
     Route: 048
     Dates: start: 20120921
  2. CC-5013 [Suspect]
     Dosage: 10 MILLIGRAM
     Route: 048
     Dates: start: 20121116

REACTIONS (4)
  - Skin cancer [Recovered/Resolved]
  - Skin cancer [Recovered/Resolved]
  - Skin cancer [Recovered/Resolved]
  - Skin cancer [Recovered/Resolved]
